FAERS Safety Report 9255546 (Version 4)
Quarter: 2013Q2

REPORT INFORMATION
  Report Type: Spontaneous
  Country: US (occurrence: US)
  Receive Date: 20130425
  Receipt Date: 20130624
  Transmission Date: 20140414
  Serious: No
  Sender: FDA-Public Use
  Company Number: US-009507513-1304USA015257

PATIENT
  Age: 18 Year
  Sex: Female

DRUGS (1)
  1. IMPLANON [Suspect]
     Dosage: UNK
     Route: 059
     Dates: start: 201205, end: 20130530

REACTIONS (4)
  - Complication of device removal [Recovering/Resolving]
  - Device deployment issue [Recovered/Resolved]
  - Medical device complication [Recovered/Resolved]
  - No adverse event [Unknown]
